FAERS Safety Report 8612304-7 (Version None)
Quarter: 2012Q3

REPORT INFORMATION
  Report Type: 
  Country: None (occurrence: None)
  Receive Date: 20120822
  Receipt Date: 20120811
  Transmission Date: 20120928
  Serious: No
  Sender: FDA-Public Use
  Company Number: AE-BAYER-2012-083126

PATIENT

DRUGS (3)
  1. ASPIRIN [Suspect]
     Indication: PAIN
     Route: 048
  2. ALEVE (CAPLET) [Suspect]
     Indication: PAIN
     Route: 048
  3. IBUPROFEN [Concomitant]

REACTIONS (2)
  - TERMINAL INSOMNIA [None]
  - PAIN [None]
